FAERS Safety Report 21530547 (Version 1)
Quarter: 2022Q4

REPORT INFORMATION
  Report Type: Spontaneous
  Country: US (occurrence: None)
  Receive Date: 20221028
  Receipt Date: 20221028
  Transmission Date: 20230113
  Serious: Yes (Hospitalization)
  Sender: FDA-Public Use
  Company Number: None

PATIENT

DRUGS (1)
  1. ACETAMINOPHEN [Suspect]
     Active Substance: ACETAMINOPHEN

REACTIONS (5)
  - Vomiting [None]
  - Pyrexia [None]
  - Hepatotoxicity [None]
  - Hypertransaminasaemia [None]
  - Renal impairment [None]

NARRATIVE: CASE EVENT DATE: 20220214
